FAERS Safety Report 6785701-2 (Version None)
Quarter: 2010Q2

REPORT INFORMATION
  Report Type: 
  Country: None (occurrence: None)
  Receive Date: 20100621
  Receipt Date: 20100621
  Transmission Date: 20101027
  Serious: Yes (Other)
  Sender: FDA-Public Use
  Company Number: None

PATIENT
  Age: 40 Year
  Sex: Female
  Weight: 76.6579 kg

DRUGS (1)
  1. LYMPHAZURIN [Suspect]
     Indication: GENERAL ANAESTHESIA
     Dates: start: 20100617, end: 20100617

REACTIONS (3)
  - ADVERSE EVENT [None]
  - BLOOD PRESSURE SYSTOLIC DECREASED [None]
  - HEART RATE INCREASED [None]
